FAERS Safety Report 6883782-9 (Version None)
Quarter: 2010Q3

REPORT INFORMATION
  Report Type: 
  Country: None (occurrence: None)
  Receive Date: 20100727
  Receipt Date: 20100719
  Transmission Date: 20110219
  Serious: Yes (Other)
  Sender: FDA-Public Use
  Company Number: ACO_01268_2010

PATIENT
  Sex: Male
  Weight: 83.0083 kg

DRUGS (20)
  1. AMPYRA [Suspect]
     Indication: MULTIPLE SCLEROSIS
     Dosage: (10 MG BID ORAL)
     Route: 048
     Dates: start: 20100609
  2. AMPYRA [Suspect]
     Indication: PERONEAL NERVE PALSY
     Dosage: (10 MG BID ORAL)
     Route: 048
     Dates: start: 20100609
  3. REBIF [Concomitant]
  4. PRAVASTATIN [Concomitant]
  5. TIMOLOL MALEATE [Concomitant]
  6. GEMFIBROZIL [Concomitant]
  7. METFORMIN HCL [Concomitant]
  8. COMBIVENT [Concomitant]
  9. RANITIDINE [Concomitant]
  10. DIAZEPAM [Concomitant]
  11. DICLOFENAC SODIUM [Concomitant]
  12. GABAPENTIN [Concomitant]
  13. BUPROPION HCL [Concomitant]
  14. FEXOFENADINE [Concomitant]
  15. ASPIRIN [Concomitant]
  16. NASONEX [Concomitant]
  17. TRAVATAN [Concomitant]
  18. FLUOCINONIDE [Concomitant]
  19. CLOTRIMAZOLE [Concomitant]
  20. CHOLORHEXIDINE [Concomitant]

REACTIONS (8)
  - CONDITION AGGRAVATED [None]
  - DRUG DOSE OMISSION [None]
  - FEELING ABNORMAL [None]
  - HEADACHE [None]
  - INSOMNIA [None]
  - MUSCLE ATROPHY [None]
  - THERAPEUTIC RESPONSE UNEXPECTED [None]
  - UNEVALUABLE EVENT [None]
